FAERS Safety Report 8361631-X (Version None)
Quarter: 2012Q2

REPORT INFORMATION
  Report Type: 
  Country: None (occurrence: None)
  Receive Date: 20120515
  Receipt Date: 20120510
  Transmission Date: 20120825
  Serious: Yes (Hospitalization, Other)
  Sender: FDA-Public Use
  Company Number: US-TEVA-334125USA

PATIENT
  Sex: Female

DRUGS (1)
  1. CEPHALEXIN [Suspect]

REACTIONS (2)
  - HEPATIC FAILURE [None]
  - IMMUNE SYSTEM DISORDER [None]
